FAERS Safety Report 9745933 (Version 1)
Quarter: 2013Q4

REPORT INFORMATION
  Report Type: Spontaneous
  Country: US (occurrence: None)
  Receive Date: 20131206
  Receipt Date: 20131206
  Transmission Date: 20140711
  Serious: Yes (Life-Threatening)
  Sender: FDA-Public Use
  Company Number: None

PATIENT
  Age: 72 Year
  Sex: Female
  Weight: 78 kg

DRUGS (1)
  1. MEPERIDINE [Suspect]
     Indication: PROCEDURAL PAIN
     Route: 042
     Dates: start: 20131007, end: 20131007

REACTIONS (2)
  - Unresponsive to stimuli [None]
  - Cardio-respiratory arrest [None]
